FAERS Safety Report 6451146-8 (Version None)
Quarter: 2009Q4

REPORT INFORMATION
  Report Type: 
  Country: None (occurrence: None)
  Receive Date: 20091123
  Receipt Date: 20091112
  Transmission Date: 20100525
  Serious: Yes (Other)
  Sender: FDA-Public Use
  Company Number: IE-PFIZER INC-2009294638

PATIENT
  Sex: Female
  Weight: 114 kg

DRUGS (1)
  1. LIPITOR [Suspect]
     Dosage: 40 MG, UNK
     Route: 048

REACTIONS (3)
  - BLOOD CHOLESTEROL INCREASED [None]
  - DYSPHAGIA [None]
  - GASTRIC BANDING [None]
